FAERS Safety Report 9441063 (Version 1)
Quarter: 2013Q3

REPORT INFORMATION
  Report Type: Spontaneous
  Country: US (occurrence: US)
  Receive Date: 20130805
  Receipt Date: 20130805
  Transmission Date: 20140515
  Serious: No
  Sender: FDA-Public Use
  Company Number: US-B.I. PHARMACEUTICALS,INC./RIDGEFIELD-2013-BI-23288BP

PATIENT
  Age: 90 Year
  Sex: Female

DRUGS (7)
  1. AGGRENOX [Suspect]
     Indication: CEREBROVASCULAR ACCIDENT PROPHYLAXIS
     Dosage: STRENGTH: 25 MG / 200 MG; DAILY DOSE: 50 MG/ 400 MG
     Route: 048
     Dates: start: 201304
  2. PREVACID [Concomitant]
     Route: 048
  3. VITAMIN D [Concomitant]
     Route: 048
  4. MEGACE [Concomitant]
     Route: 048
  5. CELEXA [Concomitant]
     Route: 048
  6. SYNTHROID [Concomitant]
     Route: 048
  7. ZOCOR [Concomitant]
     Route: 048

REACTIONS (2)
  - Fall [Not Recovered/Not Resolved]
  - Gait disturbance [Not Recovered/Not Resolved]
